FAERS Safety Report 8523257-4 (Version None)
Quarter: 2012Q3

REPORT INFORMATION
  Report Type: 
  Country: None (occurrence: None)
  Receive Date: 20120720
  Receipt Date: 20120710
  Transmission Date: 20120928
  Serious: Yes (Hospitalization)
  Sender: FDA-Public Use
  Company Number: US-JNJFOC-20120706070

PATIENT
  Sex: Male
  Weight: 108.86 kg

DRUGS (1)
  1. RISPERDAL [Suspect]
     Indication: AGGRESSION
     Route: 048

REACTIONS (4)
  - PAIN IN JAW [None]
  - ANXIETY DISORDER [None]
  - AGGRESSION [None]
  - ASPERGER'S DISORDER [None]
